FAERS Safety Report 8281240-0 (Version None)
Quarter: 2012Q2

REPORT INFORMATION
  Report Type: 
  Country: None (occurrence: None)
  Receive Date: 20120413
  Receipt Date: 20120403
  Transmission Date: 20120825
  Serious: No
  Sender: FDA-Public Use
  Company Number: US-BIOGENIDEC-2012BI012278

PATIENT
  Sex: Female

DRUGS (2)
  1. TYSABRI [Suspect]
     Indication: MULTIPLE SCLEROSIS
     Route: 042
     Dates: start: 20080103
  2. AVONEX [Concomitant]
     Indication: MULTIPLE SCLEROSIS
     Route: 030
     Dates: start: 20011126

REACTIONS (6)
  - HERPES ZOSTER [None]
  - PYREXIA [None]
  - DIPLOPIA [None]
  - COORDINATION ABNORMAL [None]
  - BALANCE DISORDER [None]
  - INFECTIOUS MONONUCLEOSIS [None]
